FAERS Safety Report 5087007-9 (Version None)
Quarter: 2006Q3

REPORT INFORMATION
  Report Type: 
  Country: None (occurrence: None)
  Receive Date: 20060818
  Receipt Date: 20060807
  Transmission Date: 20061208
  Serious: Yes (Hospitalization)
  Sender: FDA-Public Use
  Company Number: 13571

PATIENT
  Age: 52 Year
  Sex: Male

DRUGS (14)
  1. FLUOROURACIL [Suspect]
     Indication: COLORECTAL CANCER METASTATIC
     Dates: start: 20060116, end: 20060116
  2. LEUCOVORIN CALCIUM [Suspect]
     Indication: COLORECTAL CANCER METASTATIC
     Dosage: 350 MG IV
     Route: 042
     Dates: start: 20060116, end: 20060116
  3. OXALIPLATIN [Suspect]
     Indication: COLORECTAL CANCER METASTATIC
     Dosage: 85 MG/M2 IV
     Route: 042
     Dates: start: 20060116, end: 20060116
  4. ERBITUX [Suspect]
     Indication: COLORECTAL CANCER METASTATIC
     Dosage: 250 MG/M2 IV
     Route: 042
     Dates: start: 20060123, end: 20060123
  5. AVASTIN [Suspect]
     Indication: COLORECTAL CANCER METASTATIC
     Dosage: 5 MG/MKG IV
     Route: 042
     Dates: start: 20060116, end: 20060116
  6. REGLAN [Concomitant]
  7. LORTAB [Concomitant]
  8. PHENERGAN HCL [Concomitant]
  9. DULCOLAX [Concomitant]
  10. XANAX [Concomitant]
  11. POTASSIUM [Concomitant]
  12. SENOKOT [Concomitant]
  13. MEGACE ES [Concomitant]
  14. MORPHINE [Concomitant]

REACTIONS (18)
  - ABDOMINAL PAIN [None]
  - ALANINE AMINOTRANSFERASE INCREASED [None]
  - ASPARTATE AMINOTRANSFERASE INCREASED [None]
  - BACK PAIN [None]
  - BLOOD ALKALINE PHOSPHATASE INCREASED [None]
  - BLOOD BILIRUBIN INCREASED [None]
  - BLOOD GLUCOSE INCREASED [None]
  - BLOOD POTASSIUM DECREASED [None]
  - BONE SCAN ABNORMAL [None]
  - COLORECTAL CANCER METASTATIC [None]
  - DEHYDRATION [None]
  - HAEMATOCRIT DECREASED [None]
  - HAEMOGLOBIN DECREASED [None]
  - MALIGNANT NEOPLASM PROGRESSION [None]
  - NAUSEA [None]
  - PLATELET COUNT DECREASED [None]
  - VOMITING [None]
  - WEIGHT DECREASED [None]
